FAERS Safety Report 23073533 (Version 2)
Quarter: 2023Q4

REPORT INFORMATION
  Report Type: Spontaneous
  Country: US (occurrence: None)
  Receive Date: 20231017
  Receipt Date: 20231020
  Transmission Date: 20240110
  Serious: No
  Sender: FDA-Public Use
  Company Number: 2023A216773

PATIENT
  Sex: Male

DRUGS (4)
  1. CALQUENCE [Suspect]
     Active Substance: ACALABRUTINIB
     Indication: Lymphoma
     Dosage: EITHER 2 CAPSULES PER DAY, OR 1 CAPSULE PER DAY.
     Route: 048
     Dates: start: 202109
  2. CALQUENCE [Suspect]
     Active Substance: ACALABRUTINIB
     Indication: Lymphoma
     Route: 048
  3. CALQUENCE [Suspect]
     Active Substance: ACALABRUTINIB
     Indication: Lymphoma
     Dosage: 2 TABLETS PER DAY, OR 1 TABLET PER DAY.
     Route: 048
  4. CALQUENCE [Suspect]
     Active Substance: ACALABRUTINIB
     Indication: Lymphoma
     Route: 048

REACTIONS (2)
  - Feeling abnormal [Unknown]
  - Intentional product misuse [Unknown]
